FAERS Safety Report 24061584 (Version 4)
Quarter: 2024Q3

REPORT INFORMATION
  Report Type: Report from Study
  Country: US (occurrence: US)
  Receive Date: 20240708
  Receipt Date: 20240805
  Transmission Date: 20241017
  Serious: Yes (Hospitalization)
  Sender: APELLIS PHARMACEUTICALS
  Company Number: US-APELLIS-2024-APL-0000408

PATIENT

DRUGS (13)
  1. PEGCETACOPLAN [Suspect]
     Active Substance: PEGCETACOPLAN
     Indication: Paroxysmal nocturnal haemoglobinuria
     Dosage: INFUSE 1080 MG SUBCUTANEOUSLY TWICE WEEKLY AS DIRECTED FOR PNH
     Route: 058
     Dates: start: 20210726
  2. PEGCETACOPLAN [Suspect]
     Active Substance: PEGCETACOPLAN
     Dosage: 1080MG/20ML DAILY
     Route: 058
     Dates: start: 20240708
  3. VITAMIN D [Concomitant]
     Active Substance: VITAMIN D NOS
     Indication: Product used for unknown indication
  4. FOLIC ACID [Concomitant]
     Active Substance: FOLIC ACID
     Indication: Product used for unknown indication
  5. ZITHROMAX [Concomitant]
     Active Substance: AZITHROMYCIN DIHYDRATE
     Indication: Product used for unknown indication
  6. SYNTHROID [Concomitant]
     Active Substance: LEVOTHYROXINE SODIUM
     Indication: Product used for unknown indication
  7. DULOXETINE [Concomitant]
     Active Substance: DULOXETINE
     Indication: Product used for unknown indication
  8. GABAPENTIN [Concomitant]
     Active Substance: GABAPENTIN
     Indication: Product used for unknown indication
  9. ASPIRIN [Concomitant]
     Active Substance: ASPIRIN
     Indication: Product used for unknown indication
  10. ALBUTEROL [Concomitant]
     Active Substance: ALBUTEROL
     Indication: Product used for unknown indication
  11. LIPITOR [Concomitant]
     Active Substance: ATORVASTATIN CALCIUM
     Indication: Product used for unknown indication
  12. PEPCID [Concomitant]
     Active Substance: FAMOTIDINE
     Indication: Product used for unknown indication
  13. METOPROLOL [Concomitant]
     Active Substance: METOPROLOL
     Indication: Product used for unknown indication

REACTIONS (4)
  - Haemoglobin decreased [Unknown]
  - Staphylococcal infection [Unknown]
  - Off label use [Recovered/Resolved]
  - Illness [Unknown]

NARRATIVE: CASE EVENT DATE: 20240708
